FAERS Safety Report 9378365 (Version 1)
Quarter: 2013Q3

REPORT INFORMATION
  Report Type: Spontaneous
  Country: NL (occurrence: NL)
  Receive Date: 20130701
  Receipt Date: 20130701
  Transmission Date: 20140515
  Serious: Yes (Other)
  Sender: FDA-Public Use
  Company Number: NL-PFIZER INC-2013190661

PATIENT
  Sex: 0

DRUGS (1)
  1. SAYANA [Suspect]
     Dosage: UNK

REACTIONS (1)
  - Injection site necrosis [Unknown]
